FAERS Safety Report 21027961 (Version 6)
Quarter: 2023Q1

REPORT INFORMATION
  Report Type: Spontaneous
  Country: US (occurrence: US)
  Receive Date: 20220630
  Receipt Date: 20230110
  Transmission Date: 20230418
  Serious: No
  Sender: FDA-Public Use
  Company Number: US-Blueprint Medicines Corporation-SP-US-2022-002027

PATIENT
  Age: 69 Year
  Sex: Female

DRUGS (3)
  1. AYVAKIT [Suspect]
     Active Substance: AVAPRITINIB
     Indication: Systemic mastocytosis
     Route: 048
     Dates: start: 20220117
  2. AYVAKIT [Suspect]
     Active Substance: AVAPRITINIB
     Route: 048
     Dates: start: 20220117
  3. AYVAKIT [Suspect]
     Active Substance: AVAPRITINIB
     Route: 048
     Dates: start: 20220117

REACTIONS (18)
  - Skin disorder [Not Recovered/Not Resolved]
  - Skin fissures [Not Recovered/Not Resolved]
  - Tenderness [Not Recovered/Not Resolved]
  - Erythema [Not Recovered/Not Resolved]
  - Laboratory test abnormal [Not Recovered/Not Resolved]
  - Tryptase decreased [Not Recovered/Not Resolved]
  - Parosmia [Recovering/Resolving]
  - Food intolerance [Recovering/Resolving]
  - Drug ineffective [Unknown]
  - Periorbital swelling [Not Recovered/Not Resolved]
  - Rash [Not Recovered/Not Resolved]
  - Peripheral swelling [Not Recovered/Not Resolved]
  - Dysphonia [Not Recovered/Not Resolved]
  - Muscle tightness [Not Recovered/Not Resolved]
  - Skin tightness [Not Recovered/Not Resolved]
  - Tinnitus [Not Recovered/Not Resolved]
  - Throat tightness [Not Recovered/Not Resolved]
  - Tryptase increased [Unknown]

NARRATIVE: CASE EVENT DATE: 20220117
